FAERS Safety Report 19670027 (Version 1)
Quarter: 2021Q3

REPORT INFORMATION
  Report Type: Spontaneous
  Country: ID (occurrence: ID)
  Receive Date: 20210806
  Receipt Date: 20210806
  Transmission Date: 20211014
  Serious: Yes (Death)
  Sender: FDA-Public Use
  Company Number: ID-INCYTE CORPORATION-2021IN006776

PATIENT

DRUGS (1)
  1. JAKAVI [Suspect]
     Active Substance: RUXOLITINIB
     Indication: MYELOFIBROSIS
     Dosage: 5 MG, BID (2X5MG)
     Route: 065
     Dates: start: 2019, end: 2021

REACTIONS (2)
  - Thrombosis [Fatal]
  - Embolism [Fatal]
